FAERS Safety Report 24044094 (Version 1)
Quarter: 2024Q3

REPORT INFORMATION
  Report Type: Spontaneous
  Country: US (occurrence: US)
  Receive Date: 20240703
  Receipt Date: 20240703
  Transmission Date: 20241016
  Serious: Yes (Death, Hospitalization, Other)
  Sender: AMGEN
  Company Number: US-AMGEN-USASP2024124984

PATIENT
  Age: 25 Year
  Sex: Female

DRUGS (3)
  1. PREDNISONE [Suspect]
     Active Substance: PREDNISONE
     Indication: Systemic lupus erythematosus
     Dosage: UNK
     Route: 065
  2. HYDROXYCHLOROQUINE [Concomitant]
     Active Substance: HYDROXYCHLOROQUINE
  3. AZATHIOPRINE [Concomitant]
     Active Substance: AZATHIOPRINE

REACTIONS (17)
  - Brain death [Fatal]
  - Hyperammonaemia [Fatal]
  - Acute respiratory distress syndrome [Unknown]
  - Multiple organ dysfunction syndrome [Unknown]
  - Haemophagocytic lymphohistiocytosis [Unknown]
  - Splenomegaly [Unknown]
  - Histiocytic necrotising lymphadenitis [Unknown]
  - Systemic lupus erythematosus [Unknown]
  - Pericardial effusion [Unknown]
  - Sepsis [Unknown]
  - Productive cough [Unknown]
  - Nausea [Unknown]
  - Vomiting [Unknown]
  - Cardiac murmur [Unknown]
  - Rash [Unknown]
  - Aspartate aminotransferase increased [Unknown]
  - Lymphadenopathy [Unknown]
